FAERS Safety Report 22311866 (Version 2)
Quarter: 2023Q2

REPORT INFORMATION
  Report Type: Report from Study
  Country: HU (occurrence: HU)
  Receive Date: 20230512
  Receipt Date: 20230522
  Transmission Date: 20230721
  Serious: Yes (Death, Life-Threatening, Hospitalization, Other)
  Sender: FDA-Public Use
  Company Number: HU-ABBVIE-4763886

PATIENT
  Sex: Male

DRUGS (6)
  1. CARBIDOPA\LEVODOPA [Suspect]
     Active Substance: CARBIDOPA\LEVODOPA
     Indication: Parkinson^s disease
     Dosage: CONTINUOUS DOSE: 3.5 ML/HOUR; EXTRA DOSE WAS NOT USED
     Route: 050
     Dates: start: 20230507
  2. CARBIDOPA\LEVODOPA [Suspect]
     Active Substance: CARBIDOPA\LEVODOPA
     Dosage: MORNING DOSE: 9.0 ML; CONTINUOUS DOSE: 3.7 ML/HOUR; EXTRA DOSE: 1.0 ML
     Route: 050
     Dates: start: 20170621, end: 20230507
  3. Politrate depo [Concomitant]
     Indication: Neoplasm prostate
     Dosage: 1 AMPOULE INJECTION; FORM STRENGTH: 22.5 MICROGRAM
     Route: 042
  4. TANYDON [Concomitant]
     Indication: Hypertension
     Dosage: FREQUENCY: 40 MILLIGRAM IN THE MORNING
     Route: 048
  5. ALPRAZOLAM [Concomitant]
     Active Substance: ALPRAZOLAM
     Indication: Product used for unknown indication
     Dosage: FREQUENCY: 0.5 MILLIGRAM IN THE EVENING
     Route: 048
  6. Esomeprazole (Esomeprazol) [Concomitant]
     Indication: Prophylaxis
     Dosage: 40 MILLIGRAM
     Route: 048

REACTIONS (12)
  - Death [Fatal]
  - Embedded device [Unknown]
  - Gastritis [Unknown]
  - Cerebrovascular accident [Unknown]
  - Asphyxia [Recovered/Resolved]
  - Confusional state [Unknown]
  - Pneumothorax [Recovering/Resolving]
  - Loss of consciousness [Unknown]
  - Dysphagia [Recovered/Resolved]
  - Cyanosis [Unknown]
  - Apnoea [Recovered/Resolved]
  - Rib fracture [Recovering/Resolving]

NARRATIVE: CASE EVENT DATE: 20190301
